FAERS Safety Report 15700707 (Version 1)
Quarter: 2018Q4

REPORT INFORMATION
  Report Type: Spontaneous
  Country: US (occurrence: US)
  Receive Date: 20181207
  Receipt Date: 20181207
  Transmission Date: 20190205
  Serious: Yes (Other)
  Sender: FDA-Public Use
  Company Number: US-SA-2018SA331246

PATIENT
  Age: 41 Year
  Sex: Female

DRUGS (2)
  1. TAXOTERE [Suspect]
     Active Substance: DOCETAXEL
     Dosage: DOCETAXEL 100 MG/M2 200, QCY
     Route: 042
     Dates: start: 20060915, end: 20060915
  2. TAXOTERE [Suspect]
     Active Substance: DOCETAXEL
     Dosage: DOCETAXEL 100 MG/M2 200, QCY
     Route: 042
     Dates: start: 20061013, end: 20061013

REACTIONS (1)
  - Alopecia [Not Recovered/Not Resolved]
